FAERS Safety Report 18874199 (Version 1)
Quarter: 2021Q1

REPORT INFORMATION
  Report Type: Spontaneous
  Country: GB (occurrence: GB)
  Receive Date: 20210210
  Receipt Date: 20210210
  Transmission Date: 20210420
  Serious: Yes (Hospitalization, Other)
  Sender: FDA-Public Use
  Company Number: GB-009507513-2102GBR001059

PATIENT
  Age: 84 Year
  Sex: Male

DRUGS (2)
  1. FINASTERIDE. [Suspect]
     Active Substance: FINASTERIDE
     Indication: SPINAL DEFORMITY
     Dosage: UNK
     Route: 065
  2. FUROSEMIDE. [Concomitant]
     Active Substance: FUROSEMIDE
     Indication: OEDEMA PERIPHERAL
     Dosage: UNK
     Route: 048
     Dates: start: 2019

REACTIONS (10)
  - Confusional state [Unknown]
  - Oedema peripheral [Unknown]
  - Catheter site haemorrhage [Unknown]
  - Agitation [Unknown]
  - Delirium [Unknown]
  - Urinary tract infection [Unknown]
  - Feeling abnormal [Unknown]
  - Balance disorder [Unknown]
  - Dysuria [Unknown]
  - Off label use [Unknown]
